FAERS Safety Report 14466361 (Version 8)
Quarter: 2022Q1

REPORT INFORMATION
  Report Type: Spontaneous
  Country: PL (occurrence: PL)
  Receive Date: 20180131
  Receipt Date: 20220318
  Transmission Date: 20220423
  Serious: Yes (Other)
  Sender: FDA-Public Use
  Company Number: PL-AUROBINDO-AUR-APL-2018-003673

PATIENT
  Age: 70 Year
  Sex: Female

DRUGS (25)
  1. RIVASTIGMINE [Interacting]
     Active Substance: RIVASTIGMINE
     Indication: Product used for unknown indication
     Dosage: UNK
     Route: 065
  2. ROPINIROLE [Interacting]
     Active Substance: ROPINIROLE
     Indication: Parkinson^s disease
     Dosage: 2 MILLIGRAM, ONCE A DAY (DOSE DECREASED TO 2MG/DAY)
     Route: 048
  3. ROPINIROLE [Interacting]
     Active Substance: ROPINIROLE
     Dosage: 8 MILLIGRAM, ONCE A DAY IN MORNING
     Route: 065
  4. ROPINIROLE [Interacting]
     Active Substance: ROPINIROLE
     Dosage: 2 MILLIGRAM, ONCE A DAY
     Route: 048
  5. ROPINIROLE [Interacting]
     Active Substance: ROPINIROLE
     Dosage: 6 MILLIGRAM, ONCE A DAY
     Route: 065
  6. AMANTADINE [Interacting]
     Active Substance: AMANTADINE
     Indication: Parkinson^s disease
     Dosage: 100 MILLIGRAM, TWO TIMES A DAY
     Route: 065
  7. AMANTADINE [Interacting]
     Active Substance: AMANTADINE
     Dosage: 200 MILLIGRAM, ONCE A DAY
     Route: 065
  8. AMANTADINE [Interacting]
     Active Substance: AMANTADINE
     Dosage: 100 MILLIGRAM, ONCE A DAY MORNING AND MIDDAY
     Route: 065
  9. AMITRIPTYLINE HYDROCHLORIDE [Suspect]
     Active Substance: AMITRIPTYLINE HYDROCHLORIDE
     Indication: Depression
     Dosage: 25 MILLIGRAM, ONCE A DAY
     Route: 065
  10. AMITRIPTYLINE HYDROCHLORIDE [Suspect]
     Active Substance: AMITRIPTYLINE HYDROCHLORIDE
     Indication: Sleep disorder
  11. BIPERIDEN [Interacting]
     Active Substance: BIPERIDEN
     Indication: Parkinson^s disease
     Dosage: 2 MILLIGRAM, TWO TIMES A DAY
     Route: 065
  12. BIPERIDEN [Interacting]
     Active Substance: BIPERIDEN
     Dosage: 4 MILLIGRAM, ONCE A DAY
     Route: 065
  13. BIPERIDEN [Interacting]
     Active Substance: BIPERIDEN
     Dosage: 2 MILLIGRAM, ONCE A DAY
     Route: 065
  14. CARBIDOPA\LEVODOPA [Interacting]
     Active Substance: CARBIDOPA\LEVODOPA
     Indication: Parkinson^s disease
     Dosage: UNK, ONCE A DAY, 100/25 MG; AT 7.00, 11.00, 15.00 AND 19.00
     Route: 065
  15. CARBIDOPA\LEVODOPA [Interacting]
     Active Substance: CARBIDOPA\LEVODOPA
     Dosage: PROLONGED RELEASE LEVODOPA/CARBIDOPA 200/50 MG 1X/DAY AT 10:00 PM
     Route: 065
  16. CARBIDOPA\LEVODOPA [Interacting]
     Active Substance: CARBIDOPA\LEVODOPA
     Dosage: UNK, 100/25 MG 4 TIMES A DAY AT 7:00 AM. 11:00 AM, 3:00 PM AND 7:00 PM
     Route: 065
  17. CLOZAPINE [Interacting]
     Active Substance: CLOZAPINE
     Indication: Hallucinations, mixed
     Dosage: UNK
     Route: 065
  18. HYDROXYZINE [Interacting]
     Active Substance: HYDROXYZINE HYDROCHLORIDE
     Indication: Anxiety disorder
     Dosage: 25 MILLIGRAM, ONCE A DAY AS NEEDED
     Route: 065
  19. OXYBUTYNIN CHLORIDE [Interacting]
     Active Substance: OXYBUTYNIN CHLORIDE
     Indication: Urinary incontinence
     Dosage: 5 MILLIGRAM, 3 TIMES A DAY (5 MILLIGRAM, 8 HOUR)
     Route: 065
  20. OXYBUTYNIN CHLORIDE [Interacting]
     Active Substance: OXYBUTYNIN CHLORIDE
     Dosage: 15 MILLIGRAM, ONCE A DAY
     Route: 065
  21. OXYBUTYNIN CHLORIDE [Interacting]
     Active Substance: OXYBUTYNIN CHLORIDE
     Dosage: 5 MILLIGRAM, ONCE A DAY
     Route: 065
  22. RASAGILINE MESYLATE [Suspect]
     Active Substance: RASAGILINE MESYLATE
     Indication: Parkinson^s disease
     Dosage: 1 MILLIGRAM, ONCE A DAY
     Route: 065
  23. RASAGILINE TARTRATE [Interacting]
     Active Substance: RASAGILINE TARTRATE
     Indication: Parkinson^s disease
     Dosage: 1 MILLIGRAM, ONCE A DAY IN THE MORNING
     Route: 065
  24. AMOXICILLIN [Concomitant]
     Active Substance: AMOXICILLIN
     Indication: Pneumonia
     Dosage: UNK, UNKNOWN DOSE
     Route: 065
  25. CARBIDOPA\LEVODOPA [Concomitant]
     Active Substance: CARBIDOPA\LEVODOPA
     Indication: Parkinson^s disease
     Dosage: UNK, ONCE A DAY,200/50 MG; AT 22.00
     Route: 065

REACTIONS (20)
  - Pneumonia [Recovering/Resolving]
  - Dementia [Unknown]
  - Leukocytosis [Unknown]
  - White blood cell count increased [Unknown]
  - Musculoskeletal stiffness [Unknown]
  - C-reactive protein increased [Unknown]
  - Cerebral atrophy [Unknown]
  - Mental impairment [Unknown]
  - Hallucination, visual [Recovered/Resolved]
  - Neutrophil count increased [Unknown]
  - Parkinson^s disease [Unknown]
  - Resting tremor [Unknown]
  - Psychotic symptom [Unknown]
  - On and off phenomenon [Unknown]
  - Bradykinesia [Unknown]
  - Anxiety [Unknown]
  - Labelled drug-drug interaction medication error [Unknown]
  - Hallucinations, mixed [Recovered/Resolved]
  - Drug interaction [Unknown]
  - Hallucination [Recovered/Resolved]
